FAERS Safety Report 4862709-5 (Version None)
Quarter: 2005Q4

REPORT INFORMATION
  Report Type: 
  Country: None (occurrence: None)
  Receive Date: 20051221
  Receipt Date: 20051201
  Transmission Date: 20060501
  Serious: Yes (Other)
  Sender: FDA-Public Use
  Company Number: JP-MERCK-0512USA00334

PATIENT
  Age: 79 Year
  Sex: Female

DRUGS (7)
  1. PRIMAXIN [Suspect]
     Route: 041
     Dates: start: 20051122, end: 20051130
  2. LOXONIN [Suspect]
     Route: 048
     Dates: end: 20051130
  3. SELBEX [Concomitant]
     Route: 048
     Dates: end: 20051130
  4. MAGNESIUM OXIDE [Concomitant]
     Route: 048
     Dates: end: 20051130
  5. PURSENNID [Concomitant]
     Route: 048
     Dates: end: 20051130
  6. NICHOLIN [Concomitant]
     Route: 051
     Dates: end: 20051130
  7. MIRACLID [Concomitant]
     Route: 042
     Dates: end: 20051130

REACTIONS (1)
  - OEDEMA MUCOSAL [None]
